FAERS Safety Report 9836187 (Version 1)
Quarter: 2014Q1

REPORT INFORMATION
  Report Type: Spontaneous
  Country: IN (occurrence: IN)
  Receive Date: 20140123
  Receipt Date: 20140123
  Transmission Date: 20141002
  Serious: Yes (Other)
  Sender: FDA-Public Use
  Company Number: IN-ROCHE-1335918

PATIENT
  Sex: 0

DRUGS (1)
  1. XELODA [Suspect]
     Indication: PRODUCT USED FOR UNKNOWN INDICATION
     Dosage: TWICE DAILY FOR 5 DAYS A WEEK
     Route: 065

REACTIONS (3)
  - Mucosal inflammation [Unknown]
  - Leukopenia [Unknown]
  - Thrombocytopenia [Unknown]
